FAERS Safety Report 20771112 (Version 1)
Quarter: 2022Q2

REPORT INFORMATION
  Report Type: Spontaneous
  Country: US (occurrence: US)
  Receive Date: 20220429
  Receipt Date: 20220429
  Transmission Date: 20220720
  Serious: No
  Sender: FDA-Public Use
  Company Number: US-TEVA-2022-US-2025182

PATIENT
  Sex: Female

DRUGS (1)
  1. AJOVY [Suspect]
     Active Substance: FREMANEZUMAB-VFRM
     Dosage: 225 MG / 1.5 ML
     Route: 065

REACTIONS (7)
  - Accidental exposure to product [Unknown]
  - Incorrect dose administered by device [Unknown]
  - Injection site haemorrhage [Unknown]
  - Injection site rash [Unknown]
  - Injection site erythema [Unknown]
  - Injection site pruritus [Unknown]
  - Device difficult to use [Unknown]
